FAERS Safety Report 19654339 (Version 1)
Quarter: 2021Q3

REPORT INFORMATION
  Report Type: Spontaneous
  Country: GB (occurrence: GB)
  Receive Date: 20210804
  Receipt Date: 20210804
  Transmission Date: 20211014
  Serious: Yes (Other)
  Sender: FDA-Public Use
  Company Number: GB-TEVA-2021-GB-1938367

PATIENT
  Age: 50 Year
  Sex: Female
  Weight: 45.81 kg

DRUGS (4)
  1. TEVA UK TOPIRAMATE [Suspect]
     Active Substance: TOPIRAMATE
     Indication: MIGRAINE
     Dosage: 50 MILLIGRAM DAILY;
     Route: 048
     Dates: start: 201605, end: 201608
  2. SUMATRIPTAN. [Concomitant]
     Active Substance: SUMATRIPTAN
  3. LANSOPRAZOL [Concomitant]
     Active Substance: LANSOPRAZOLE
  4. IBUPROFEN. [Concomitant]
     Active Substance: IBUPROFEN

REACTIONS (3)
  - Constipation [Recovered/Resolved]
  - Abdominal pain upper [Recovered/Resolved]
  - Iron deficiency [Recovered/Resolved]

NARRATIVE: CASE EVENT DATE: 201605
